FAERS Safety Report 8671553 (Version 4)
Quarter: 2012Q4

REPORT INFORMATION
  Report Type: 
  Country: US (occurrence: US)
  Receive Date: 20120718
  Receipt Date: 20121030
  Transmission Date: 20130627
  Serious: Yes (Death)
  Sender: FDA-Public Use
  Company Number: US-CELGENEUS-163-21880-12071642

PATIENT
  Age: 69 Year
  Sex: Male

DRUGS (2)
  1. REVLIMID [Suspect]
     Indication: MULTIPLE MYELOMA
     Dosage: 25 Milligram
     Route: 048
     Dates: start: 201004, end: 20120702
  2. AUGMENTIN [Concomitant]
     Indication: PRODUCTIVE COUGH
     Route: 065
     Dates: start: 201207

REACTIONS (1)
  - Non-small cell lung cancer metastatic [Fatal]
